FAERS Safety Report 19001727 (Version 4)
Quarter: 2022Q3

REPORT INFORMATION
  Report Type: Spontaneous
  Country: US (occurrence: None)
  Receive Date: 20210312
  Receipt Date: 20220907
  Transmission Date: 20221026
  Serious: No
  Sender: FDA-Public Use
  Company Number: US-FARMAPROD-202012-1781

PATIENT
  Age: 55 Year
  Sex: Female

DRUGS (3)
  1. OXERVATE [Suspect]
     Active Substance: CENEGERMIN-BKBJ
     Indication: Keratitis
     Route: 047
     Dates: start: 20201221
  2. COD LIVER OIL [Concomitant]
     Active Substance: COD LIVER OIL
     Dosage: OIL
  3. RETAINE MGD [Concomitant]
     Active Substance: LIGHT MINERAL OIL\MINERAL OIL
     Dosage: 0.5%-0.5% DROPERETTE

REACTIONS (5)
  - Eye pain [Unknown]
  - Lacrimation increased [Not Recovered/Not Resolved]
  - Periorbital pain [Recovered/Resolved]
  - Eye irritation [Not Recovered/Not Resolved]
  - Blepharospasm [Unknown]

NARRATIVE: CASE EVENT DATE: 20210706
